FAERS Safety Report 6528232-7 (Version None)
Quarter: 2010Q1

REPORT INFORMATION
  Report Type: 
  Country: None (occurrence: None)
  Receive Date: 20100106
  Receipt Date: 20091225
  Transmission Date: 20100710
  Serious: Yes (Death)
  Sender: FDA-Public Use
  Company Number: JP-BAYER-200914839BYL

PATIENT
  Age: 74 Year
  Sex: Male

DRUGS (8)
  1. NEXAVAR [Suspect]
     Indication: HEPATIC NEOPLASM MALIGNANT
     Dosage: TOTAL DAILY DOSE: 800 MG  UNIT DOSE: 200 MG
     Route: 048
     Dates: start: 20091029, end: 20091123
  2. NEXAVAR [Suspect]
     Dosage: UNIT DOSE: 200 MG
     Route: 048
     Dates: start: 20091124, end: 20091128
  3. NOVOLIN R [Concomitant]
     Dosage: SINCE BEFORE NEXAVAR ADMINISTRATION
     Route: 057
     Dates: end: 20091128
  4. NOVORAPID [Concomitant]
     Dosage: SINCE BEFORE NEXAVAR ADMINISTRATION
     Route: 057
     Dates: end: 20091128
  5. MAGMITT [Concomitant]
     Dosage: SINCE BEFORE NEXAVAR ADMINISTRATION
     Route: 048
     Dates: end: 20091128
  6. ZEFIX [Concomitant]
     Route: 048
     Dates: start: 20010111, end: 20091128
  7. TOKISHAKUYAKUSAN [Concomitant]
     Route: 048
     Dates: start: 20091109, end: 20091128
  8. BACCIDAL [Concomitant]
     Route: 048
     Dates: start: 20091124, end: 20091128

REACTIONS (6)
  - CARDIAC ARREST [None]
  - CHEST PAIN [None]
  - HAEMATEMESIS [None]
  - LOSS OF CONSCIOUSNESS [None]
  - MELAENA [None]
  - UPPER GASTROINTESTINAL HAEMORRHAGE [None]
